FAERS Safety Report 5772020-6 (Version None)
Quarter: 2008Q2

REPORT INFORMATION
  Report Type: 
  Country: None (occurrence: None)
  Receive Date: 20080611
  Receipt Date: 20080528
  Transmission Date: 20081010
  Serious: Yes (Other)
  Sender: FDA-Public Use
  Company Number: ENT 2008-0079

PATIENT
  Sex: Male

DRUGS (2)
  1. COMTAN [Suspect]
  2. SINEMET CR [Concomitant]

REACTIONS (5)
  - CEREBROVASCULAR ACCIDENT [None]
  - CONDITION AGGRAVATED [None]
  - DYSPHONIA [None]
  - MUSCULOSKELETAL STIFFNESS [None]
  - PARKINSONISM [None]
